FAERS Safety Report 10406130 (Version 1)
Quarter: 2014Q3

REPORT INFORMATION
  Report Type: Report from Study
  Country: US (occurrence: None)
  Receive Date: 20140821
  Receipt Date: 20140821
  Transmission Date: 20150326
  Serious: Yes (Hospitalization)
  Sender: FDA-Public Use
  Company Number: KAD201408-000933

PATIENT
  Age: 63 Year
  Sex: Female
  Weight: 87.53 kg

DRUGS (21)
  1. CAMBIA (DICLOFENAC POTASSIUM) [Concomitant]
  2. ASPIRIN (ACETYLSALICYLIC ACID) [Concomitant]
     Active Substance: ASPIRIN
  3. ZOFRAN (ODANSETRON HYDROCHLORIDE) [Concomitant]
  4. TYLENOL EXTRA STRENGTH (PARACETAMOL) [Concomitant]
  5. ALPROZOLAM [Concomitant]
     Active Substance: ALPRAZOLAM
  6. FOLIC ACID. [Concomitant]
     Active Substance: FOLIC ACID
  7. LASIX [Concomitant]
     Active Substance: FUROSEMIDE
  8. RIBAVIRIN (RIBAVIRIN) [Suspect]
     Active Substance: RIBAVIRIN
     Indication: HEPATITIS C
     Route: 048
     Dates: start: 20140207, end: 20140330
  9. SOFOSBUVIR (SOFOSBUVIR) [Suspect]
     Active Substance: SOFOSBUVIR
     Indication: HEPATITIS C
     Route: 048
     Dates: start: 20140207, end: 20140330
  10. PROMACTA (ELTROMBOPAGOLAMINE) [Concomitant]
  11. IRON [Concomitant]
     Active Substance: IRON
  12. KLOR-CON [Concomitant]
     Active Substance: POTASSIUM CHLORIDE
  13. OXYCODONE [Concomitant]
     Active Substance: OXYCODONE
  14. KENALOG [Concomitant]
     Active Substance: TRIAMCINOLONE ACETONIDE
  15. PRILOSEC (OMEPRAZOLE) [Concomitant]
     Active Substance: OMEPRAZOLE MAGNESIUM
  16. TOPAMAX [Concomitant]
     Active Substance: TOPIRAMATE
  17. LIDOCAINE. [Concomitant]
     Active Substance: LIDOCAINE
  18. OMEPRAZOLE. [Concomitant]
     Active Substance: OMEPRAZOLE
  19. LEXAPRO [Concomitant]
     Active Substance: ESCITALOPRAM OXALATE
  20. VINCODIN (HYDROCODONE BITARTARATE, PARACETAMOL) [Concomitant]
  21. MELOXICAM. [Concomitant]
     Active Substance: MELOXICAM

REACTIONS (7)
  - Fall [None]
  - Escherichia infection [None]
  - Febrile neutropenia [None]
  - Infection [None]
  - Syncope [None]
  - Culture urine positive [None]
  - Pubis fracture [None]

NARRATIVE: CASE EVENT DATE: 20140330
